FAERS Safety Report 10206203 (Version 1)
Quarter: 2014Q2

REPORT INFORMATION
  Report Type: Spontaneous
  Country: US (occurrence: None)
  Receive Date: 20140527
  Receipt Date: 20140527
  Transmission Date: 20141212
  Serious: Yes (Other)
  Sender: FDA-Public Use
  Company Number: ADR-2014-00618

PATIENT
  Age: 24 Year
  Sex: Male

DRUGS (5)
  1. LIORESAL [Suspect]
     Indication: MUSCLE SPASTICITY
     Dates: start: 20100216
  2. ORAL BACLOFEN [Suspect]
     Indication: MUSCLE SPASTICITY
  3. SYMMETREL [Suspect]
     Route: 048
  4. RITALIN [Suspect]
     Route: 048
  5. RESTORIL [Suspect]
     Route: 048

REACTIONS (7)
  - Muscle spasticity [None]
  - Drooling [None]
  - Blood pressure abnormal [None]
  - Tachyphylaxis [None]
  - Device leakage [None]
  - Device kink [None]
  - Cerebrospinal fluid leakage [None]
